FAERS Safety Report 17026260 (Version 1)
Quarter: 2019Q4

REPORT INFORMATION
  Report Type: Spontaneous
  Country: US (occurrence: US)
  Receive Date: 20191009
  Receipt Date: 20191009
  Transmission Date: 20200122
  Serious: Yes (Death)
  Sender: FDA-Public Use
  Company Number: None

PATIENT
  Age: 63 Year
  Sex: Female

DRUGS (1)
  1. IMATINIB  400MG TAB (X30) [Suspect]
     Active Substance: IMATINIB
     Route: 048
     Dates: start: 201907

REACTIONS (1)
  - Death [None]

NARRATIVE: CASE EVENT DATE: 20190911
